FAERS Safety Report 6733177-3 (Version None)
Quarter: 2010Q2

REPORT INFORMATION
  Report Type: 
  Country: None (occurrence: None)
  Receive Date: 20100520
  Receipt Date: 20100507
  Transmission Date: 20101027
  Serious: Yes (Other)
  Sender: FDA-Public Use
  Company Number: 2010BI004882

PATIENT
  Age: 53 Year
  Sex: Female
  Weight: 108 kg

DRUGS (4)
  1. TYSABRI [Suspect]
     Indication: MULTIPLE SCLEROSIS
     Route: 042
     Dates: start: 20071001
  2. NEURONTIN [Concomitant]
     Indication: MUSCLE SPASMS
  3. BACLOFEN [Concomitant]
     Indication: PAIN IN EXTREMITY
  4. OXYCODONE [Concomitant]
     Indication: PAIN

REACTIONS (8)
  - ANAL SPHINCTER ATONY [None]
  - BILIARY CIRRHOSIS PRIMARY [None]
  - DIARRHOEA [None]
  - DYSPHONIA [None]
  - FATIGUE [None]
  - GASTROOESOPHAGEAL REFLUX DISEASE [None]
  - MEMORY IMPAIRMENT [None]
  - STOMATITIS [None]
